FAERS Safety Report 8214485-6 (Version None)
Quarter: 2012Q1

REPORT INFORMATION
  Report Type: 
  Country: None (occurrence: None)
  Receive Date: 20120316
  Receipt Date: 20120316
  Transmission Date: 20120608
  Serious: Yes (Other)
  Sender: FDA-Public Use
  Company Number: None

PATIENT
  Age: 61 Year
  Sex: Female
  Weight: 81.646 kg

DRUGS (1)
  1. DOVE VISIBLE CARE RENEWING  CREME BODY WASH [Suspect]

REACTIONS (7)
  - INCORRECT ROUTE OF DRUG ADMINISTRATION [None]
  - OCULAR HYPERAEMIA [None]
  - LACRIMATION INCREASED [None]
  - ACCIDENTAL EXPOSURE [None]
  - EYELID IRRITATION [None]
  - EYE PAIN [None]
  - EYELID EXFOLIATION [None]
